FAERS Safety Report 9642682 (Version 2)
Quarter: 2013Q4

REPORT INFORMATION
  Report Type: Spontaneous
  Country: US (occurrence: US)
  Receive Date: 20131024
  Receipt Date: 20131024
  Transmission Date: 20140711
  Serious: No
  Sender: FDA-Public Use
  Company Number: US-PFIZER INC-2013007270

PATIENT
  Sex: 0

DRUGS (1)
  1. EFFEXOR XR [Suspect]
     Indication: HOT FLUSH
     Dosage: UNK
     Dates: start: 2007

REACTIONS (3)
  - Off label use [Unknown]
  - Feeling of body temperature change [Unknown]
  - Therapeutic response unexpected [Unknown]
